FAERS Safety Report 13380907 (Version 1)
Quarter: 2017Q1

REPORT INFORMATION
  Report Type: Spontaneous
  Country: US (occurrence: US)
  Receive Date: 20170329
  Receipt Date: 20170329
  Transmission Date: 20170429
  Serious: No
  Sender: FDA-Public Use
  Company Number: US-BAYER-2017-059387

PATIENT
  Sex: Male
  Weight: 14.5 kg

DRUGS (2)
  1. MIRALAX [Suspect]
     Active Substance: POLYETHYLENE GLYCOL 3350
     Indication: CONSTIPATION
     Dosage: 1 TBSP, BID
     Dates: start: 201611, end: 201702
  2. MICROGENICS PROBIOTIC 8 [Concomitant]
     Active Substance: LACTOBACILLUS ACIDOPHILUS
     Dosage: 1 DF, QD

REACTIONS (1)
  - Onychophagia [Recovered/Resolved with Sequelae]

NARRATIVE: CASE EVENT DATE: 201703
